FAERS Safety Report 8557961-9 (Version None)
Quarter: 2012Q3

REPORT INFORMATION
  Report Type: 
  Country: None (occurrence: None)
  Receive Date: 20120801
  Receipt Date: 20120723
  Transmission Date: 20120928
  Serious: Yes (Hospitalization)
  Sender: FDA-Public Use
  Company Number: US-ELI_LILLY_AND_COMPANY-US201202005108

PATIENT
  Sex: Female
  Weight: 64 kg

DRUGS (28)
  1. TYLENOL                                 /SCH/ [Concomitant]
     Dosage: UNK, PRN
  2. LOSARTAN POTASSIUM [Concomitant]
  3. TOPICAL                            /00806601/ [Concomitant]
  4. TRIAMCINOLONE [Concomitant]
  5. VOLTAREN [Concomitant]
  6. TRAMADOL HYDROCHLORIDE [Concomitant]
  7. FLEXERIL [Concomitant]
     Dosage: UNK, PRN
  8. OMEPRAZOLE [Concomitant]
     Route: 048
  9. MULTI-VITAMINS [Concomitant]
  10. FERROUS GLUCONATE [Concomitant]
  11. IRON [Concomitant]
  12. LASIX [Concomitant]
     Dosage: 20 MG, OTHER
     Route: 048
  13. FORTEO [Suspect]
     Indication: OSTEOPOROSIS
     Dosage: 20 UG, QD
     Route: 058
  14. PREDNISONE [Concomitant]
     Dosage: UNK
  15. MULTIVITAMIN [Concomitant]
     Route: 048
  16. RANITIDINE HCL [Concomitant]
  17. LOMOTIL [Concomitant]
     Dosage: UNK, PRN
     Route: 048
  18. CALCIUM [Concomitant]
  19. LEVOTHYROXINE SODIUM [Concomitant]
     Dosage: 50 UG, UNK
     Route: 048
  20. FORTEO [Suspect]
     Dosage: 20 UG, QD
     Route: 058
     Dates: start: 20120127, end: 20120131
  21. FLONASE [Concomitant]
  22. HYDROCHLOROTHIAZIDE [Concomitant]
     Dosage: 12.5 MG, OTHER
     Route: 048
  23. FORTEO [Suspect]
     Dosage: 20 UG, QD
     Route: 058
     Dates: start: 20120208
  24. PLAQUENIL [Concomitant]
  25. VITAMIN D [Concomitant]
  26. GLIPIZIDE [Concomitant]
     Dosage: 10 MG, UNK
     Route: 048
  27. GAVISCON                                /GFR/ [Concomitant]
     Route: 048
  28. MULTI-VITAMIN [Concomitant]

REACTIONS (2)
  - DIVERTICULAR PERFORATION [None]
  - HEARING IMPAIRED [None]
